FAERS Safety Report 13454975 (Version 2)
Quarter: 2017Q2

REPORT INFORMATION
  Report Type: Spontaneous
  Country: US (occurrence: US)
  Receive Date: 20170418
  Receipt Date: 20170512
  Transmission Date: 20170830
  Serious: Yes (Hospitalization, Other)
  Sender: FDA-Public Use
  Company Number: US-PFIZER INC-2017163967

PATIENT
  Age: 67 Year
  Sex: Male

DRUGS (20)
  1. LYRICA [Suspect]
     Active Substance: PREGABALIN
     Indication: FIBROMYALGIA
     Dosage: 300 MG, 2X/DAY
     Route: 048
     Dates: start: 2000
  2. KLONOPIN [Concomitant]
     Active Substance: CLONAZEPAM
     Dosage: 1 MG, AS NEEDED (TWICE A DAY)
     Route: 048
  3. BENTYL [Concomitant]
     Active Substance: DICYCLOMINE HYDROCHLORIDE
     Indication: MUSCLE SPASMS
     Dosage: 20 MG, AS NEEDED (3 (THREE) TIMES DAILY)
     Route: 048
  4. NORCO [Concomitant]
     Active Substance: ACETAMINOPHEN\HYDROCODONE BITARTRATE
     Indication: PAIN
     Dosage: 1 DF, AS NEEDED  [HYDROCODONE BITARTRATE 5 MG]/ [PARACETAMOL 325 MG] EVERY 6 (SIX) HOURS
     Route: 048
  5. GLUCOPHAGE XR [Concomitant]
     Active Substance: METFORMIN HYDROCHLORIDE
     Dosage: 500 MG, UNK
     Route: 048
  6. LYRICA [Suspect]
     Active Substance: PREGABALIN
     Indication: TYPE 2 DIABETES MELLITUS
  7. ZOFRAN [Concomitant]
     Active Substance: ONDANSETRON HYDROCHLORIDE
     Indication: NAUSEA
     Dosage: 1 TABLET (4 MG TOTAL) BY MOUTH 3 (THREE) TIMES DAILY AS NEEDED FOR UP TO 15 DOSES
     Route: 048
  8. BOTULINUM TOXIN (BOTULINUM TOXIN TYPE A) [Concomitant]
     Active Substance: BOTULINUM TOXIN TYPE A
     Dosage: 200 IU, UNK
     Route: 030
  9. LYRICA [Suspect]
     Active Substance: PREGABALIN
     Indication: RESTLESS LEGS SYNDROME
  10. LYRICA [Suspect]
     Active Substance: PREGABALIN
     Indication: HYPERLIPIDAEMIA
  11. TENORMIN [Concomitant]
     Active Substance: ATENOLOL
     Dosage: 25 MG, DAILY
     Route: 048
  12. FLONASE [Concomitant]
     Active Substance: FLUTICASONE PROPIONATE
     Dosage: UNK UNK, DAILY (USE 2 SPRAYS IN EACH NOSTRIL DAILY)
     Route: 045
  13. LIPITOR [Concomitant]
     Active Substance: ATORVASTATIN CALCIUM
     Dosage: 10 MG, DAILY
     Route: 048
  14. CYMBALTA [Concomitant]
     Active Substance: DULOXETINE HYDROCHLORIDE
     Dosage: 60 MG, UNK
     Route: 048
  15. PRILOSEC [Concomitant]
     Active Substance: OMEPRAZOLE MAGNESIUM
     Dosage: 20 MG, DAILY
     Route: 048
  16. VITAMIN D3 [Concomitant]
     Active Substance: CHOLECALCIFEROL
     Dosage: 50000 IU, UNK
     Route: 048
  17. XALATAN [Concomitant]
     Active Substance: LATANOPROST
     Dosage: UNK
  18. LOFIBRA [Concomitant]
     Active Substance: FENOFIBRATE
     Dosage: 200 MG, UNK
     Route: 048
  19. COZAAR [Concomitant]
     Active Substance: LOSARTAN POTASSIUM
     Dosage: 50 MG, UNK
     Route: 048
  20. ZANAFLEX [Concomitant]
     Active Substance: TIZANIDINE HYDROCHLORIDE
     Dosage: 4 MG, DAILY
     Route: 048

REACTIONS (10)
  - Scratch [Recovered/Resolved]
  - Hypertension [Unknown]
  - Small intestinal obstruction [Unknown]
  - Pruritus [Recovered/Resolved]
  - Burning sensation [Recovered/Resolved]
  - Inflammatory bowel disease [Unknown]
  - Prescribed overdose [Unknown]
  - Intentional self-injury [Unknown]
  - Intestinal obstruction [Recovered/Resolved]
  - Blister [Recovered/Resolved]

NARRATIVE: CASE EVENT DATE: 2000
